FAERS Safety Report 5149427-3 (Version None)
Quarter: 2006Q4

REPORT INFORMATION
  Report Type: 
  Country: None (occurrence: None)
  Receive Date: 20061113
  Receipt Date: 20060110
  Transmission Date: 20070319
  Serious: No
  Sender: FDA-Public Use
  Company Number: 431587

PATIENT
  Age: 61 Year
  Sex: Female

DRUGS (5)
  1. COREG [Suspect]
     Indication: HYPERTENSION
     Dosage: 25MCG TWICE PER DAY
     Route: 048
     Dates: start: 20050501
  2. NORVASC [Concomitant]
  3. NEXIUM [Concomitant]
  4. HYZAAR [Concomitant]
  5. UNKNOWN MEDICATION [Concomitant]

REACTIONS (3)
  - BLOOD PRESSURE INCREASED [None]
  - DRUG INEFFECTIVE [None]
  - PHARMACEUTICAL PRODUCT COMPLAINT [None]
